FAERS Safety Report 9264009 (Version 7)
Quarter: 2016Q2

REPORT INFORMATION
  Report Type: Spontaneous
  Country: US (occurrence: US)
  Receive Date: 20130430
  Receipt Date: 20160408
  Transmission Date: 20160815
  Serious: Yes (Disabling)
  Sender: FDA-Public Use
  Company Number: US-009507513-1304USA017456

PATIENT
  Sex: Male

DRUGS (7)
  1. PROSCAR [Suspect]
     Active Substance: FINASTERIDE
     Indication: ALOPECIA
     Dosage: 1/4 OF 5MG TABLET (1.25MG) QD
     Route: 048
     Dates: start: 200810, end: 201111
  2. FINASTERIDE. [Suspect]
     Active Substance: FINASTERIDE
     Dosage: 1/4 OF 5MG TABLET (1.25MG) QD
     Route: 048
     Dates: start: 200810, end: 201111
  3. FINASTERIDE. [Suspect]
     Active Substance: FINASTERIDE
     Dosage: 5 MG, UNK
     Route: 048
     Dates: start: 20061102, end: 20110318
  4. FINASTERIDE. [Suspect]
     Active Substance: FINASTERIDE
     Indication: ALOPECIA
     Dosage: 1/4 OF 5MG TABLET (1.25MG) QD
     Route: 048
     Dates: start: 200602, end: 200806
  5. FINASTERIDE. [Suspect]
     Active Substance: FINASTERIDE
     Dosage: 5 MG, QD
     Route: 048
     Dates: start: 20070316, end: 20080223
  6. PROSCAR [Suspect]
     Active Substance: FINASTERIDE
     Indication: ANDROGENETIC ALOPECIA
     Dosage: 5 MG, QD
     Route: 048
     Dates: start: 20060221, end: 20110720
  7. PROPECIA [Suspect]
     Active Substance: FINASTERIDE
     Dosage: 1 MG, QD
     Route: 048
     Dates: start: 20110121

REACTIONS (9)
  - Stress [Unknown]
  - Semen volume decreased [Not Recovered/Not Resolved]
  - Hyperlipidaemia [Unknown]
  - Weight increased [Unknown]
  - Wrong technique in product usage process [Unknown]
  - Orchitis [Unknown]
  - Drug administration error [Unknown]
  - Erectile dysfunction [Not Recovered/Not Resolved]
  - Libido decreased [Not Recovered/Not Resolved]

NARRATIVE: CASE EVENT DATE: 2006
